FAERS Safety Report 21905512 (Version 2)
Quarter: 2024Q2

REPORT INFORMATION
  Report Type: Spontaneous
  Country: US (occurrence: US)
  Receive Date: 20230124
  Receipt Date: 20240415
  Transmission Date: 20240716
  Serious: No
  Sender: FDA-Public Use
  Company Number: US-SA-SAC20230120001540

PATIENT
  Sex: Female

DRUGS (24)
  1. DUPIXENT [Suspect]
     Active Substance: DUPILUMAB
     Indication: Dermatitis atopic
     Dosage: 300 MG, QOW
     Route: 058
     Dates: start: 20220120
  2. DUPIXENT [Suspect]
     Active Substance: DUPILUMAB
     Dosage: 300 MG, QOW
     Route: 058
  3. ALPRAZOLAM [Concomitant]
     Active Substance: ALPRAZOLAM
  4. AZITHROMYCIN [Concomitant]
     Active Substance: AZITHROMYCIN
  5. CLOBETASOL [Concomitant]
     Active Substance: CLOBETASOL
  6. DESONIDE [Concomitant]
     Active Substance: DESONIDE
  7. DULERA [Concomitant]
     Active Substance: FORMOTEROL FUMARATE DIHYDRATE\MOMETASONE FUROATE
     Dosage: 100-5MCG
  8. HYDROCODONE BITARTRATE AND ACETAMINOPHEN [Concomitant]
     Active Substance: ACETAMINOPHEN\HYDROCODONE BITARTRATE
     Dosage: 5-325MG
  9. PREDNISOLONE [Concomitant]
     Active Substance: PREDNISOLONE
  10. PREDNISONE [Concomitant]
     Active Substance: PREDNISONE
  11. TRAMADOL HCL [Concomitant]
     Active Substance: TRAMADOL HYDROCHLORIDE
  12. ALBUTEROL SULFATE [Concomitant]
     Active Substance: ALBUTEROL SULFATE
  13. CYCLOSPORINE [Concomitant]
     Active Substance: CYCLOSPORINE
  14. FLUCONAZOLE [Concomitant]
     Active Substance: FLUCONAZOLE
  15. FLUTICASONE [Concomitant]
     Active Substance: FLUTICASONE
  16. ACETAMINOPHEN\HYDROCODONE [Concomitant]
     Active Substance: ACETAMINOPHEN\HYDROCODONE
     Dosage: 10-325MG
  17. NALOXONE HCL [Concomitant]
     Active Substance: NALOXONE HYDROCHLORIDE
  18. NP THYROID [Concomitant]
     Active Substance: LEVOTHYROXINE\LIOTHYRONINE
  19. OMEPRAZOLE [Concomitant]
     Active Substance: OMEPRAZOLE
  20. PROMETHAZINE [Concomitant]
     Active Substance: PROMETHAZINE HYDROCHLORIDE
  21. RESTASIS [Concomitant]
     Active Substance: CYCLOSPORINE
  22. XIIDRA [Concomitant]
     Active Substance: LIFITEGRAST
  23. FLUOROMETHOLONE [Concomitant]
     Active Substance: FLUOROMETHOLONE
  24. NP THYROID [Concomitant]
     Active Substance: LEVOTHYROXINE\LIOTHYRONINE

REACTIONS (3)
  - Sleep disorder due to a general medical condition [Recovered/Resolved]
  - Dermatitis atopic [Not Recovered/Not Resolved]
  - Drug ineffective [Unknown]
